FAERS Safety Report 13167334 (Version 1)
Quarter: 2017Q1

REPORT INFORMATION
  Report Type: Spontaneous
  Country: US (occurrence: US)
  Receive Date: 20170130
  Receipt Date: 20170130
  Transmission Date: 20170428
  Serious: No
  Sender: FDA-Public Use
  Company Number: None

PATIENT
  Age: 48 Year
  Sex: Female
  Weight: 72 kg

DRUGS (10)
  1. PRILOSEC [Concomitant]
     Active Substance: OMEPRAZOLE MAGNESIUM
  2. HYDRALAZINE [Concomitant]
     Active Substance: HYDRALAZINE HYDROCHLORIDE
  3. MIRVASO [Suspect]
     Active Substance: BRIMONIDINE TARTRATE
     Indication: ROSACEA
     Dosage: QUANTITY:1 PEA SIZED DROP;?
     Route: 061
     Dates: start: 20160120, end: 20170120
  4. PRAVASTATIN. [Concomitant]
     Active Substance: PRAVASTATIN
  5. DULCOLAX NOS [Concomitant]
     Active Substance: BISACODYL OR DOCUSATE SODIUM
  6. ULTIMATECARE ONE NF [Concomitant]
     Active Substance: .ALPHA.-TOCOPHEROL ACETATE, DL-\BIOTIN\CALCIUM\CALCIUM ASCORBATE\CALCIUM THREONATE\CHOLECALCIFEROL\DOCONEXENT\DOCUSATE SODIUM\FERROUS ASPARTO GLYCINATE\FOLIC ACID\ICOSAPENT\IODINE\IRON\LINOLENIC ACID\MAGNESIUM OXIDE\NIACINAMIDE\OMEGA-3 FATTY ACIDS\PYRIDOXINE HYDROCHLORIDE\RIBOFLAVIN\ZINC OXIDE
  7. METOPROLOL. [Concomitant]
     Active Substance: METOPROLOL
  8. ASPIRIN. [Concomitant]
     Active Substance: ASPIRIN
  9. AMLODIPINE [Concomitant]
     Active Substance: AMLODIPINE BESYLATE
  10. FLOUEXETINE [Concomitant]

REACTIONS (5)
  - Flushing [None]
  - Erythema [None]
  - Facial pain [None]
  - Therapy cessation [None]
  - Temperature intolerance [None]

NARRATIVE: CASE EVENT DATE: 20161118
